FAERS Safety Report 5856755-2 (Version None)
Quarter: 2008Q3

REPORT INFORMATION
  Report Type: 
  Country: None (occurrence: None)
  Receive Date: 20080825
  Receipt Date: 20080813
  Transmission Date: 20090109
  Serious: Yes (Other)
  Sender: FDA-Public Use
  Company Number: US-PFIZER INC-2008065244

PATIENT
  Sex: Male
  Weight: 104 kg

DRUGS (2)
  1. CHANTIX [Suspect]
     Indication: SMOKING CESSATION THERAPY
     Route: 048
  2. IBUPROFEN [Concomitant]
     Indication: BACK DISORDER

REACTIONS (3)
  - AGGRESSION [None]
  - HOMICIDAL IDEATION [None]
  - SELF INJURIOUS BEHAVIOUR [None]
